FAERS Safety Report 6303658-5 (Version None)
Quarter: 2009Q3

REPORT INFORMATION
  Report Type: 
  Country: None (occurrence: None)
  Receive Date: 20090810
  Receipt Date: 20090803
  Transmission Date: 20100115
  Serious: Yes (Disabling)
  Sender: FDA-Public Use
  Company Number: PHHO2009FR09265

PATIENT
  Sex: Female
  Weight: 72 kg

DRUGS (8)
  1. ZOLEDRONATE T29581+SOLINJ+BM [Suspect]
     Indication: BONE SARCOMA
     Dosage: 4MG
     Route: 042
     Dates: start: 20070925
  2. VITAMIN D [Concomitant]
  3. CALCIUM [Concomitant]
  4. METHOTREXATE [Concomitant]
  5. ETOPOSIDE [Concomitant]
  6. IFOSFAMIDE [Concomitant]
  7. ADRIAMYCIN RDF [Concomitant]
  8. CISPLATIN [Concomitant]

REACTIONS (2)
  - AMENORRHOEA [None]
  - OVARIAN FAILURE [None]
